FAERS Safety Report 11133457 (Version 2)
Quarter: 2015Q2

REPORT INFORMATION
  Report Type: Spontaneous
  Country: US (occurrence: US)
  Receive Date: 20150522
  Receipt Date: 20150528
  Transmission Date: 20150821
  Serious: No
  Sender: FDA-Public Use
  Company Number: US-ASTRAZENECA-2015SE47190

PATIENT
  Age: 79 Year
  Sex: Female
  Weight: 43 kg

DRUGS (14)
  1. NEXIUM 24HR [Suspect]
     Active Substance: ESOMEPRAZOLE MAGNESIUM
     Indication: ABDOMINAL DISCOMFORT
     Route: 048
     Dates: start: 20150216
  2. ZYRTEC [Concomitant]
     Active Substance: CETIRIZINE HYDROCHLORIDE
  3. TOLTERODINE L-TARTRATE [Concomitant]
     Route: 048
  4. SIMVASTATIN. [Concomitant]
     Active Substance: SIMVASTATIN
  5. BUFFERIN [Concomitant]
     Active Substance: ASPIRIN
     Indication: ARTHRITIS
     Route: 048
  6. CITRACAL [Concomitant]
     Active Substance: CALCIUM CITRATE
  7. NEXIUM 24HR [Suspect]
     Active Substance: ESOMEPRAZOLE MAGNESIUM
     Indication: ABDOMINAL DISCOMFORT
     Route: 048
     Dates: start: 20150504
  8. FISH OIL [Concomitant]
     Active Substance: FISH OIL
  9. VITAMIN D [Concomitant]
     Active Substance: CHOLECALCIFEROL
     Route: 048
  10. NEXIUM 24HR [Suspect]
     Active Substance: ESOMEPRAZOLE MAGNESIUM
     Indication: GASTROOESOPHAGEAL REFLUX DISEASE
     Route: 048
     Dates: start: 20150504
  11. CLARITIN [Concomitant]
     Active Substance: LORATADINE
  12. GLUCOSAMINE [Concomitant]
     Active Substance: GLUCOSAMINE
     Indication: BONE DISORDER
  13. NEXIUM 24HR [Suspect]
     Active Substance: ESOMEPRAZOLE MAGNESIUM
     Indication: GASTROOESOPHAGEAL REFLUX DISEASE
     Route: 048
     Dates: start: 20150216
  14. GARLIC. [Concomitant]
     Active Substance: GARLIC
     Indication: IMMUNE SYSTEM DISORDER

REACTIONS (6)
  - Amnesia [Not Recovered/Not Resolved]
  - Memory impairment [Unknown]
  - Off label use [Unknown]
  - Sleep disorder due to a general medical condition [Not Recovered/Not Resolved]
  - Pain [Not Recovered/Not Resolved]
  - Drug ineffective for unapproved indication [Unknown]

NARRATIVE: CASE EVENT DATE: 2015
